FAERS Safety Report 9272876 (Version 1)
Quarter: 2013Q2

REPORT INFORMATION
  Report Type: Spontaneous
  Country: CA (occurrence: CA)
  Receive Date: 20130506
  Receipt Date: 20130506
  Transmission Date: 20140414
  Serious: Yes (Hospitalization)
  Sender: FDA-Public Use
  Company Number: CA-ELI_LILLY_AND_COMPANY-CA201304007781

PATIENT
  Age: 85 Year
  Sex: Female

DRUGS (9)
  1. FORTEO [Suspect]
     Indication: OSTEOPOROSIS
     Dosage: 20 UG, QD
     Route: 058
     Dates: start: 20121105
  2. ASA [Concomitant]
     Dosage: UNK, UNKNOWN
     Route: 065
  3. ATORVASTATIN [Concomitant]
     Dosage: UNK, UNKNOWN
     Route: 065
  4. D-TABS [Concomitant]
     Dosage: UNK, UNKNOWN
     Route: 065
  5. CALCIUM [Concomitant]
     Dosage: UNK, UNKNOWN
     Route: 065
  6. PANTOLOC                           /01263204/ [Concomitant]
     Dosage: UNK, UNKNOWN
     Route: 065
  7. PENTOXIFYLLINE [Concomitant]
     Dosage: UNK, UNKNOWN
     Route: 065
  8. METOPROLOL [Concomitant]
     Dosage: UNK, UNKNOWN
     Route: 065
  9. CENTRUM [Concomitant]
     Dosage: UNK, UNKNOWN
     Route: 065

REACTIONS (2)
  - Tibia fracture [Not Recovered/Not Resolved]
  - Fall [Not Recovered/Not Resolved]
